FAERS Safety Report 9862999 (Version 3)
Quarter: 2014Q2

REPORT INFORMATION
  Report Type: Spontaneous
  Country: US (occurrence: US)
  Receive Date: 20140203
  Receipt Date: 20140505
  Transmission Date: 20141212
  Serious: No
  Sender: FDA-Public Use
  Company Number: US-GILEAD-2014-0093372

PATIENT
  Age: 66 Year
  Sex: Female

DRUGS (10)
  1. LETAIRIS [Suspect]
     Indication: PULMONARY ARTERIAL HYPERTENSION
     Dosage: 5 MG, QD
     Route: 065
     Dates: start: 20140120, end: 20140129
  2. TYLENOL                            /00020001/ [Concomitant]
  3. IBUPROFEN [Concomitant]
  4. VITAMIN D                          /00107901/ [Concomitant]
  5. CALCIUM [Concomitant]
  6. POTASSIUM [Concomitant]
  7. SODIUM CHLORIDE [Concomitant]
  8. ATIVAN [Concomitant]
  9. AVAPRO [Concomitant]
  10. COREG [Concomitant]

REACTIONS (2)
  - Fluid retention [Unknown]
  - Oedema [Unknown]
